FAERS Safety Report 11703967 (Version 1)
Quarter: 2015Q4

REPORT INFORMATION
  Report Type: Other
  Country: RW (occurrence: RW)
  Receive Date: 20151106
  Receipt Date: 20151106
  Transmission Date: 20160304
  Serious: Yes (Other)
  Sender: FDA-Public Use
  Company Number: RW-LUPIN PHARMACEUTICALS INC.-2015-03124

PATIENT
  Age: 51 Year
  Sex: Male

DRUGS (2)
  1. CARVEDILOL. [Suspect]
     Active Substance: CARVEDILOL
     Indication: PRODUCT USED FOR UNKNOWN INDICATION
     Route: 065
  2. LOSARTAN. [Suspect]
     Active Substance: LOSARTAN
     Indication: PRODUCT USED FOR UNKNOWN INDICATION
     Route: 065

REACTIONS (2)
  - Pruritus [Recovering/Resolving]
  - Rash generalised [Recovering/Resolving]
